FAERS Safety Report 7450913-1 (Version None)
Quarter: 2011Q2

REPORT INFORMATION
  Report Type: 
  Country: None (occurrence: None)
  Receive Date: 20110502
  Receipt Date: 20110420
  Transmission Date: 20111010
  Serious: Yes (Death)
  Sender: FDA-Public Use
  Company Number: US-ROCHE-657783

PATIENT
  Sex: Female
  Weight: 121 kg

DRUGS (12)
  1. SKELAXIN [Concomitant]
  2. LIPITOR [Concomitant]
  3. AMBIEN [Concomitant]
  4. TOCILIZUMAB [Suspect]
     Indication: RHEUMATOID ARTHRITIS
     Dosage: FORM: INFUSION.
     Route: 042
     Dates: start: 20081209, end: 20090309
  5. TRILEPTAL [Concomitant]
     Dosage: FREQUENCY: QD
     Route: 048
     Dates: start: 20090325
  6. SINGULAIR [Concomitant]
  7. NEXIUM [Concomitant]
  8. HYZAAR [Concomitant]
  9. FLONASE [Concomitant]
     Dosage: TDD: 2 SQUIRTS
  10. XANAX [Concomitant]
  11. ZOLOFT [Concomitant]
  12. XYZAL [Concomitant]

REACTIONS (1)
  - CARDIAC ARREST [None]
